FAERS Safety Report 21411621 (Version 1)
Quarter: 2022Q4

REPORT INFORMATION
  Report Type: Spontaneous
  Country: JP (occurrence: JP)
  Receive Date: 20221005
  Receipt Date: 20221005
  Transmission Date: 20230113
  Serious: No
  Sender: FDA-Public Use
  Company Number: JP-CHEMOCENTRYX, INC.-2022JPCCXI0221

PATIENT

DRUGS (3)
  1. TAVNEOS [Suspect]
     Active Substance: AVACOPAN
     Indication: Microscopic polyangiitis
     Dosage: 60 MG (30 MG,2 IN 1 D)
     Route: 048
     Dates: start: 20220611
  2. TAVNEOS [Suspect]
     Active Substance: AVACOPAN
     Dosage: 40 MG (20 MG,2 IN 1 D)
     Route: 048
     Dates: start: 20220701
  3. TAVNEOS [Suspect]
     Active Substance: AVACOPAN
     Dosage: (30 MG,2 IN 1 D)
     Route: 048
     Dates: start: 20220707

REACTIONS (1)
  - Diarrhoea [Recovered/Resolved]

NARRATIVE: CASE EVENT DATE: 20220617
